FAERS Safety Report 23617522 (Version 1)
Quarter: 2024Q1

REPORT INFORMATION
  Report Type: Spontaneous
  Country: GB (occurrence: GB)
  Receive Date: 20240311
  Receipt Date: 20240311
  Transmission Date: 20240410
  Serious: Yes (Other)
  Sender: FDA-Public Use
  Company Number: None

PATIENT

DRUGS (1)
  1. LEVOTHYROXINE [Suspect]
     Active Substance: LEVOTHYROXINE\LEVOTHYROXINE SODIUM
     Route: 065

REACTIONS (9)
  - Hypothyroidism [Unknown]
  - Migraine [Recovered/Resolved]
  - Muscle disorder [Recovered/Resolved]
  - Bone disorder [Recovered/Resolved]
  - Tremor [Unknown]
  - Cyanosis [Unknown]
  - Vomiting [Recovered/Resolved]
  - Seizure [Unknown]
  - Hypertrophy [Unknown]
